FAERS Safety Report 5373583-5 (Version None)
Quarter: 2007Q2

REPORT INFORMATION
  Report Type: 
  Country: None (occurrence: None)
  Receive Date: 20070628
  Receipt Date: 20070416
  Transmission Date: 20071010
  Serious: No
  Sender: FDA-Public Use
  Company Number: US-BAUSCH-2007BL001233

PATIENT
  Sex: Female

DRUGS (2)
  1. ZYLET [Suspect]
     Indication: CHALAZION
     Route: 047
     Dates: start: 20070101, end: 20070101
  2. ZYLET [Suspect]
     Indication: OFF LABEL USE
     Route: 047
     Dates: start: 20070101, end: 20070101

REACTIONS (2)
  - DRUG INEFFECTIVE FOR UNAPPROVED INDICATION [None]
  - EYE DISORDER [None]
